FAERS Safety Report 5706425-6 (Version None)
Quarter: 2008Q2

REPORT INFORMATION
  Report Type: 
  Country: None (occurrence: None)
  Receive Date: 20080411
  Receipt Date: 20080328
  Transmission Date: 20081010
  Serious: Yes (Hospitalization, Disabling)
  Sender: FDA-Public Use
  Company Number: DSJ-2008-03633

PATIENT
  Age: 18 Year
  Sex: Male

DRUGS (1)
  1. OFLOCET AURICULAIRE (OFLOXACIN)(EAR DROPS)(OFLOXACIN) [Suspect]
     Dosage: 2 DOSAGE FORMS (1 DOSAGE FORMS,2 IN 1 D),AURICULAR (OTIC)
     Route: 001
     Dates: start: 20050928, end: 20051006

REACTIONS (4)
  - CONDITION AGGRAVATED [None]
  - DEAFNESS [None]
  - MIDDLE EAR DISORDER [None]
  - VERTIGO POSITIONAL [None]
